FAERS Safety Report 5187076-1 (Version None)
Quarter: 2006Q4

REPORT INFORMATION
  Report Type: 
  Country: None (occurrence: None)
  Receive Date: 20061212
  Receipt Date: 20061201
  Transmission Date: 20070319
  Serious: Yes (Hospitalization)
  Sender: FDA-Public Use
  Company Number: 2005BI021284

PATIENT
  Age: 46 Year
  Sex: Female
  Weight: 136.0791 kg

DRUGS (5)
  1. AVONEX [Suspect]
     Indication: MULTIPLE SCLEROSIS
     Dosage: 30 UG;QW;IM
     Route: 030
     Dates: start: 19960101, end: 19980101
  2. AVONEX [Suspect]
     Indication: MULTIPLE SCLEROSIS
     Dosage: 30 UG;QW;IM
     Route: 030
     Dates: start: 20030602
  3. LANTUS [Concomitant]
  4. AVANDIA [Concomitant]
  5. HUMALOG [Concomitant]

REACTIONS (5)
  - DEHYDRATION [None]
  - DIPLOPIA [None]
  - HYPERTENSION [None]
  - RENAL FAILURE [None]
  - UPPER RESPIRATORY TRACT INFECTION [None]
